FAERS Safety Report 10944841 (Version 1)
Quarter: 2015Q1

REPORT INFORMATION
  Report Type: Spontaneous
  Country: CA (occurrence: None)
  Receive Date: 20150318
  Receipt Date: 20150318
  Transmission Date: 20150721
  Serious: Yes (Other)
  Sender: FDA-Public Use
  Company Number: COL_19336_2015

PATIENT
  Age: 22 Year
  Sex: Male

DRUGS (1)
  1. TOMS OF MAINE NATURAL LONG LASTING UNSCENTED STICK DEODORANT [Suspect]
     Active Substance: COSMETICS
     Indication: PRODUCT USED FOR UNKNOWN INDICATION
     Dosage: 2-3 SWIPES TO EACH ARM/
     Route: 061
     Dates: start: 20150307, end: 20150307

REACTIONS (5)
  - Anaphylactic shock [None]
  - Hypersensitivity [None]
  - Urticaria [None]
  - Dyspnoea [None]
  - Throat tightness [None]

NARRATIVE: CASE EVENT DATE: 20150307
